FAERS Safety Report 7399872-0 (Version None)
Quarter: 2011Q2

REPORT INFORMATION
  Report Type: 
  Country: None (occurrence: None)
  Receive Date: 20110407
  Receipt Date: 20110404
  Transmission Date: 20111010
  Serious: Yes (Death, Hospitalization)
  Sender: FDA-Public Use
  Company Number: AT-SANOFI-AVENTIS-2011SA003987

PATIENT
  Age: 66 Year
  Sex: Male
  Weight: 69.1 kg

DRUGS (20)
  1. ELOXATIN [Suspect]
     Route: 041
     Dates: start: 20110119, end: 20110119
  2. MOTILIUM [Concomitant]
     Dates: start: 20101129
  3. FRAGMIN [Concomitant]
     Dates: start: 20101123
  4. LEXOTANIL [Concomitant]
     Dates: start: 20110120, end: 20110124
  5. ELOXATIN [Suspect]
     Indication: GASTRIC CANCER
     Route: 041
     Dates: start: 20101129, end: 20101129
  6. HYDAL [Concomitant]
     Dates: start: 20101126
  7. MOTILIUM [Concomitant]
     Dates: start: 20101202, end: 20110125
  8. IRINOTECAN [Suspect]
     Route: 041
     Dates: start: 20110119, end: 20110119
  9. LACTULOSE [Concomitant]
     Dosage: 1-2 SPOONS
     Dates: start: 20101129
  10. NAVOBAN [Concomitant]
     Dates: start: 20101129
  11. HALCION [Concomitant]
     Dates: start: 20110124, end: 20110124
  12. PANTOPRAZOLE [Concomitant]
     Dates: start: 20101117
  13. HYDAL [Concomitant]
     Dates: start: 20101212
  14. AVASTIN [Suspect]
     Indication: GASTRIC CANCER
     Route: 041
     Dates: start: 20101129, end: 20101129
  15. HYDAL [Concomitant]
     Dates: start: 20101126
  16. SOLUTIONS FOR PARENTERAL NUTRITION [Concomitant]
     Dates: start: 20110120, end: 20110124
  17. BIPERIDEN HYDROCHLORIDE TAB [Concomitant]
     Dates: start: 20110120, end: 20110120
  18. AVASTIN [Suspect]
     Route: 041
     Dates: start: 20110119, end: 20110119
  19. IRINOTECAN [Suspect]
     Indication: GASTRIC CANCER
     Route: 041
     Dates: start: 20101129, end: 20101129
  20. PANTOPRAZOLE [Concomitant]
     Dates: start: 20110131

REACTIONS (3)
  - NAUSEA [None]
  - DEATH [None]
  - VOMITING [None]
